FAERS Safety Report 15190101 (Version 1)
Quarter: 2018Q3

REPORT INFORMATION
  Report Type: Spontaneous
  Country: US (occurrence: US)
  Receive Date: 20180724
  Receipt Date: 20180724
  Transmission Date: 20181010
  Serious: No
  Sender: FDA-Public Use
  Company Number: US-BIOGEN-2018BI00611053

PATIENT
  Sex: Male

DRUGS (1)
  1. SPINRAZA [Suspect]
     Active Substance: NUSINERSEN
     Indication: SPINAL MUSCULAR ATROPHY
     Route: 065

REACTIONS (7)
  - Initial insomnia [Unknown]
  - Decreased appetite [Unknown]
  - Irritability [Unknown]
  - Screaming [Unknown]
  - Fatigue [Unknown]
  - Crying [Unknown]
  - Somnolence [Unknown]
